FAERS Safety Report 10156772 (Version 2)
Quarter: 2014Q2

REPORT INFORMATION
  Report Type: Spontaneous
  Country: FR (occurrence: FR)
  Receive Date: 20140507
  Receipt Date: 20140507
  Transmission Date: 20141212
  Serious: Yes (Hospitalization)
  Sender: FDA-Public Use
  Company Number: FR-MERCK-1402FRA007195

PATIENT
  Age: 53 Year
  Sex: Female
  Weight: 73.8 kg

DRUGS (5)
  1. JANUVIA [Suspect]
     Indication: TYPE 2 DIABETES MELLITUS
     Dosage: 100 MG, QD
     Route: 048
     Dates: start: 20130915, end: 20131028
  2. METFORMIN [Concomitant]
     Indication: TYPE 2 DIABETES MELLITUS
     Dosage: 850 MG, TID
     Dates: start: 1995
  3. ATORVASTATIN [Concomitant]
     Indication: DYSLIPIDAEMIA
     Dosage: 40 MG, QD
  4. ESOMEPRAZOLE [Concomitant]
     Indication: GASTRODUODENAL ULCER
     Dosage: 40 MG, QD
  5. PREGABALIN [Concomitant]
     Indication: NEUROPATHY PERIPHERAL
     Dosage: 75 MG, QD

REACTIONS (1)
  - Impaired gastric emptying [Recovered/Resolved]
